FAERS Safety Report 7600484-1 (Version None)
Quarter: 2011Q2

REPORT INFORMATION
  Report Type: 
  Country: None (occurrence: None)
  Receive Date: 20110629
  Receipt Date: 20110616
  Transmission Date: 20111010
  Serious: Yes (Hospitalization)
  Sender: FDA-Public Use
  Company Number: DSU-2011-04446

PATIENT
  Age: 61 Year
  Sex: Female

DRUGS (1)
  1. OLMESARTAN MEDOXOMIL [Suspect]
     Indication: PRODUCT USED FOR UNKNOWN INDICATION
     Dosage: 40 MG (40 MG, QD), PER ORAL
     Route: 048
     Dates: start: 20100621, end: 20110315

REACTIONS (4)
  - DEHYDRATION [None]
  - GASTRITIS [None]
  - ENTEROCOLITIS [None]
  - RENAL FAILURE ACUTE [None]
